FAERS Safety Report 22047560 (Version 1)
Quarter: 2023Q1

REPORT INFORMATION
  Report Type: Other
  Country: FR (occurrence: FR)
  Receive Date: 20230301
  Receipt Date: 20230301
  Transmission Date: 20230417
  Serious: Yes (Hospitalization)
  Sender: FDA-Public Use
  Company Number: None

PATIENT

DRUGS (4)
  1. TRAMADOL [Suspect]
     Active Substance: TRAMADOL
     Indication: Product used for unknown indication
     Dosage: UNK
     Route: 064
  2. AZATHIOPRINE [Suspect]
     Active Substance: AZATHIOPRINE
     Indication: Product used for unknown indication
     Dosage: UNK
     Route: 064
  3. TACROLIMUS [Suspect]
     Active Substance: TACROLIMUS
     Indication: Product used for unknown indication
     Dosage: UNK
     Route: 064
  4. PREDNISOLONE SODIUM METAZOATE [Suspect]
     Active Substance: PREDNISOLONE SODIUM METAZOATE
     Indication: Product used for unknown indication
     Dosage: UNK
     Route: 064

REACTIONS (8)
  - Hyperkalaemia [Recovered/Resolved]
  - Hypertrophic cardiomyopathy [Not Recovered/Not Resolved]
  - Neonatal hyponatraemia [Recovered/Resolved]
  - Premature baby [Recovered/Resolved]
  - Renal failure [Recovered/Resolved]
  - Hypoglycaemia neonatal [Recovered/Resolved]
  - Neonatal respiratory distress [Recovered/Resolved]
  - Foetal macrosomia [Recovered/Resolved]

NARRATIVE: CASE EVENT DATE: 20220601
